FAERS Safety Report 6819577-1 (Version None)
Quarter: 2010Q3

REPORT INFORMATION
  Report Type: 
  Country: None (occurrence: None)
  Receive Date: 20100701
  Receipt Date: 20090619
  Transmission Date: 20110219
  Serious: No
  Sender: FDA-Public Use
  Company Number: US-TEVA-199063USA

PATIENT
  Sex: Female
  Weight: 41.768 kg

DRUGS (7)
  1. AZILECT [Suspect]
     Route: 048
     Dates: start: 20090519
  2. STALEVO 100 [Concomitant]
  3. LEVOTHYROXINE SODIUM [Concomitant]
  4. RISEDRONATE SODIUM [Concomitant]
  5. ROPINIROLE HYDROCHLORIDE [Concomitant]
  6. MEMANTINE HCL [Concomitant]
  7. DONEPEZIL HYDROCHLORIDE [Concomitant]

REACTIONS (1)
  - MOVEMENT DISORDER [None]
